FAERS Safety Report 14986195 (Version 1)
Quarter: 2018Q2

REPORT INFORMATION
  Report Type: Spontaneous
  Country: US (occurrence: US)
  Receive Date: 20180607
  Receipt Date: 20180607
  Transmission Date: 20180711
  Serious: No
  Sender: FDA-Public Use
  Company Number: US-009507513-1806USA002992

PATIENT
  Sex: Female

DRUGS (1)
  1. CLARINEX [Suspect]
     Active Substance: DESLORATADINE
     Dosage: 5 MG, ONCE A DAY
     Route: 048
     Dates: start: 20170509

REACTIONS (1)
  - Somnolence [Unknown]
